FAERS Safety Report 8738377 (Version 3)
Quarter: 2012Q4

REPORT INFORMATION
  Report Type: 
  Country: US (occurrence: US)
  Receive Date: 20120829
  Receipt Date: 20121008
  Transmission Date: 20130627
  Serious: Yes (Other)
  Sender: FDA-Public Use
  Company Number: US-PFIZER INC-2012203855

PATIENT
  Age: 56 Year
  Sex: Male
  Weight: 96.6 kg

DRUGS (6)
  1. NAVANE [Suspect]
     Indication: HALLUCINATION
     Dosage: UNK
     Dates: start: 201207, end: 201207
  2. NAVANE [Suspect]
     Indication: DEPRESSION
  3. NAVANE [Suspect]
     Indication: NERVOUSNESS
  4. NAVANE [Suspect]
     Indication: SCHIZOPHRENIA
  5. NAVANE [Suspect]
     Indication: HEADACHE
  6. GEODON [Concomitant]
     Indication: SCHIZOAFFECTIVE DISORDER
     Dosage: UNK

REACTIONS (3)
  - Extrapyramidal disorder [Unknown]
  - Drug ineffective [Unknown]
  - Therapeutic response unexpected [Unknown]
